FAERS Safety Report 4907319-6 (Version None)
Quarter: 2006Q1

REPORT INFORMATION
  Report Type: 
  Country: None (occurrence: None)
  Receive Date: 20060208
  Receipt Date: 20060208
  Transmission Date: 20060701
  Serious: Yes (Hospitalization)
  Sender: FDA-Public Use
  Company Number: None

PATIENT
  Age: 57 Year
  Sex: Male

DRUGS (9)
  1. FLEET PHOSPO SODA [Suspect]
     Indication: PREMEDICATION
     Dosage: 90 ML
     Dates: start: 20051109
  2. BACLOFEN [Concomitant]
  3. LORTAB [Concomitant]
  4. QUETIAPINE [Concomitant]
  5. SPIRONOLACTONE [Concomitant]
  6. VENLAFAXINE HCL [Concomitant]
  7. ALLOPURINOL [Concomitant]
  8. OSCAL [Concomitant]
  9. FESO4 [Concomitant]

REACTIONS (2)
  - HYPOKALAEMIA [None]
  - VENTRICULAR TACHYCARDIA [None]
